FAERS Safety Report 8098957-3 (Version None)
Quarter: 2012Q1

REPORT INFORMATION
  Report Type: 
  Country: None (occurrence: None)
  Receive Date: 20120129
  Receipt Date: 20111026
  Transmission Date: 20120608
  Serious: No
  Sender: FDA-Public Use
  Company Number: US-ABBOTT-11P-163-0860782-00

PATIENT
  Age: 76 Year
  Sex: Female

DRUGS (13)
  1. ASPIRIN [Concomitant]
     Indication: PROPHYLAXIS
  2. MIRAPEX [Concomitant]
     Indication: RESTLESS LEGS SYNDROME
     Dosage: 2 QHS
  3. CALCIUM [Concomitant]
     Indication: PRODUCT USED FOR UNKNOWN INDICATION
  4. HUMIRA [Suspect]
     Indication: CROHN'S DISEASE
     Dates: start: 20110926
  5. DILTIAZEM HCL [Concomitant]
     Indication: CORONARY ARTERY OCCLUSION
  6. LIPITOR [Concomitant]
     Indication: BLOOD CHOLESTEROL
  7. FUROSEMIDE [Concomitant]
     Indication: FLUID RETENTION
  8. MULTI-VITAMIN [Concomitant]
     Indication: PRODUCT USED FOR UNKNOWN INDICATION
  9. BENICAR [Concomitant]
     Indication: DRUG THERAPY
  10. LEVOXYL [Concomitant]
     Indication: DRUG THERAPY
  11. HUMIRA [Suspect]
     Dates: start: 20110704
  12. LEXAPRO [Concomitant]
     Indication: DEPRESSION
  13. VITAMIN D [Concomitant]
     Indication: SUPPLEMENTATION THERAPY

REACTIONS (3)
  - CONDITION AGGRAVATED [None]
  - THERAPY REGIMEN CHANGED [None]
  - DRUG INEFFECTIVE [None]
